FAERS Safety Report 14348265 (Version 1)
Quarter: 2018Q1

REPORT INFORMATION
  Report Type: Spontaneous
  Country: US (occurrence: US)
  Receive Date: 20180103
  Receipt Date: 20180103
  Transmission Date: 20180509
  Serious: No
  Sender: FDA-Public Use
  Company Number: US-PFIZER INC-2017553878

PATIENT
  Age: 79 Year
  Sex: Female

DRUGS (15)
  1. LETROZOLE. [Concomitant]
     Active Substance: LETROZOLE
     Dosage: 2.5 MG, UNK
  2. IBRANCE [Suspect]
     Active Substance: PALBOCICLIB
     Indication: AMASTIA
     Dosage: 125 MG, CYCLIC (TAKE ONE CAPSULE BY MOUTH ONCE DAILY WITH BREAKFAST FOR 21 DAYS, THEN 7 DAYS OFF)
     Route: 048
     Dates: start: 20171019
  3. DEXAMETHASONE. [Concomitant]
     Active Substance: DEXAMETHASONE
     Dosage: 2 MG, UNK
  4. DILT-XR [Concomitant]
     Active Substance: DILTIAZEM
     Dosage: 180 MG, UNK
  5. METRONIDAZOL [Concomitant]
     Active Substance: METRONIDAZOLE
     Dosage: 500 MG, UNK
  6. CARVEDILOL. [Concomitant]
     Active Substance: CARVEDILOL
     Dosage: 12.5 MG, UNK
  7. FUROSEMIDE. [Concomitant]
     Active Substance: FUROSEMIDE
     Dosage: 20 MG, UNK
  8. POTASSIUM CH [Concomitant]
     Dosage: 20 MEQ, UNK
  9. WARFARIN SODIUM. [Concomitant]
     Active Substance: WARFARIN SODIUM
     Dosage: 1 MG, UNK
  10. FLUZONE QUAD [Concomitant]
     Dosage: UNK (9 MCG/STR)
  11. DIGOX [Concomitant]
     Active Substance: DIGOXIN
     Dosage: 125 UG, UNK
  12. ONDANSETRON TBD [Concomitant]
     Dosage: 8 MG, UNK
  13. XYZAL ALLERG [Concomitant]
     Dosage: 5 MG, UNK
  14. ATORVASTATIN [Concomitant]
     Active Substance: ATORVASTATIN
     Dosage: 10 MG, UNK
  15. PROCHLORPERA [Concomitant]
     Dosage: 10 MG, UNK

REACTIONS (1)
  - White blood cell count decreased [Unknown]

NARRATIVE: CASE EVENT DATE: 2017
